FAERS Safety Report 8072278-7 (Version None)
Quarter: 2012Q1

REPORT INFORMATION
  Report Type: 
  Country: None (occurrence: None)
  Receive Date: 20120126
  Receipt Date: 20120123
  Transmission Date: 20120608
  Serious: No
  Sender: FDA-Public Use
  Company Number: US-PFIZER INC-2012019503

PATIENT

DRUGS (1)
  1. LIPITOR [Suspect]

REACTIONS (1)
  - MYALGIA [None]
